FAERS Safety Report 4847118-7 (Version None)
Quarter: 2005Q4

REPORT INFORMATION
  Report Type: 
  Country: None (occurrence: None)
  Receive Date: 20051207
  Receipt Date: 20050103
  Transmission Date: 20060501
  Serious: Yes (Life-Threatening, Hospitalization)
  Sender: FDA-Public Use
  Company Number: FRWYE313905JAN05

PATIENT
  Age: 67 Year
  Sex: Male

DRUGS (3)
  1. ENBREL [Suspect]
     Indication: RHEUMATOID ARTHRITIS
     Route: 058
     Dates: start: 20040330, end: 20040719
  2. NOVATREX [Suspect]
     Indication: RHEUMATOID ARTHRITIS
     Route: 048
     Dates: end: 20040719
  3. SOLU-MEDROL [Suspect]
     Route: 048
     Dates: start: 20010628, end: 20040719

REACTIONS (5)
  - ACUTE RESPIRATORY DISTRESS SYNDROME [None]
  - HAEMODIALYSIS [None]
  - HAEMOPTYSIS [None]
  - PNEUMONIA LEGIONELLA [None]
  - RENAL FAILURE ACUTE [None]
